FAERS Safety Report 7314535-5 (Version None)
Quarter: 2011Q1

REPORT INFORMATION
  Report Type: 
  Country: None (occurrence: None)
  Receive Date: 20110225
  Receipt Date: 20101008
  Transmission Date: 20110831
  Serious: No
  Sender: FDA-Public Use
  Company Number: US-MYLANLABS-2010S1017576

PATIENT
  Age: 25 Year
  Sex: Female
  Weight: 48.99 kg

DRUGS (2)
  1. AMNESTEEM [Suspect]
     Route: 048
     Dates: start: 20100915
  2. AMNESTEEM [Suspect]
     Indication: ACNE CYSTIC
     Route: 048
     Dates: start: 20100915

REACTIONS (3)
  - SKIN IRRITATION [None]
  - DRY SKIN [None]
  - SKIN TIGHTNESS [None]
